FAERS Safety Report 26177753 (Version 2)
Quarter: 2025Q4

REPORT INFORMATION
  Report Type: Report from Study
  Country: US (occurrence: US)
  Receive Date: 20251219
  Receipt Date: 20251230
  Transmission Date: 20260118
  Serious: No
  Sender: ABBVIE
  Company Number: US-ABBVIE-6596680

PATIENT
  Age: 7 Year
  Sex: Female

DRUGS (2)
  1. LUPRON [Suspect]
     Active Substance: LEUPROLIDE ACETATE
     Indication: Precocious puberty
     Dosage: LUPRON DEPOT-PED FORM STRENGTH: 30 MG
     Route: 058
     Dates: start: 20250618, end: 20251229
  2. LUPRON [Suspect]
     Active Substance: LEUPROLIDE ACETATE
     Indication: Hyperpituitarism

REACTIONS (2)
  - Insomnia [Unknown]
  - Insomnia [Recovered/Resolved]

NARRATIVE: CASE EVENT DATE: 20250901
